FAERS Safety Report 21403161 (Version 2)
Quarter: 2022Q4

REPORT INFORMATION
  Report Type: Spontaneous
  Country: US (occurrence: US)
  Receive Date: 20221003
  Receipt Date: 20221003
  Transmission Date: 20230112
  Serious: No
  Sender: FDA-Public Use
  Company Number: None

PATIENT
  Age: 66 Year
  Sex: Female
  Weight: 90.72 kg

DRUGS (6)
  1. VASCEPA [Suspect]
     Active Substance: ICOSAPENT ETHYL
     Indication: Blood cholesterol increased
     Dosage: FREQUENCY TEXT : TWICE DAILY
     Route: 048
     Dates: start: 20200302, end: 20211028
  2. VASCEPA [Suspect]
     Active Substance: ICOSAPENT ETHYL
     Indication: Hyperlipidaemia
  3. VASCEPA [Suspect]
     Active Substance: ICOSAPENT ETHYL
     Indication: Cardiovascular event prophylaxis
  4. LEVOTHYROXINE [Suspect]
     Active Substance: LEVOTHYROXINE
     Indication: Hypothyroidism
     Dates: start: 202101
  5. LEVOTHYROXINE [Suspect]
     Active Substance: LEVOTHYROXINE
  6. LEVOTHYROXINE [Suspect]
     Active Substance: LEVOTHYROXINE
     Dates: start: 20210531

REACTIONS (5)
  - Haemorrhage [Recovered/Resolved]
  - Pruritus [Recovering/Resolving]
  - Weight decreased [Recovered/Resolved]
  - Palpitations [Recovered/Resolved]
  - Hyperthyroidism [Recovered/Resolved]

NARRATIVE: CASE EVENT DATE: 20210101
